FAERS Safety Report 4486686-4 (Version None)
Quarter: 2004Q4

REPORT INFORMATION
  Report Type: 
  Country: None (occurrence: None)
  Receive Date: 20041021
  Receipt Date: 20041008
  Transmission Date: 20050328
  Serious: Yes (Other)
  Sender: FDA-Public Use
  Company Number: 2004233974US

PATIENT
  Age: 19 Year
  Sex: Female
  Weight: 55.8 kg

DRUGS (1)
  1. DEPO-PROVERA [Suspect]
     Indication: CONTRACEPTION
     Dosage: 150 MG, MOST RECENT INJ.
     Dates: start: 20040723, end: 20040723

REACTIONS (7)
  - ABORTION SPONTANEOUS [None]
  - DIZZINESS [None]
  - DRUG EXPOSURE DURING PREGNANCY [None]
  - HOT FLUSH [None]
  - PREGNANCY ON ORAL CONTRACEPTIVE [None]
  - VISION BLURRED [None]
  - VOMITING [None]
